FAERS Safety Report 10102374 (Version 7)
Quarter: 2015Q2

REPORT INFORMATION
  Report Type: Report from Study
  Country: FR (occurrence: FR)
  Receive Date: 20140424
  Receipt Date: 20150421
  Transmission Date: 20150821
  Serious: Yes (Other)
  Sender: FDA-Public Use
  Company Number: FR-ASTELLAS-2014EU003971

PATIENT
  Age: 53 Year
  Sex: Male

DRUGS (7)
  1. CHOLECALCIFEROL [Concomitant]
     Active Substance: CHOLECALCIFEROL
     Indication: PAIN PROPHYLAXIS
     Route: 048
     Dates: start: 2010
  2. ENZALUTAMIDE [Suspect]
     Active Substance: ENZALUTAMIDE
     Indication: PROSTATE CANCER
     Route: 048
     Dates: start: 20140703
  3. TRIPTORELIN [Concomitant]
     Active Substance: TRIPTORELIN
     Indication: PROSTATE CANCER
     Dosage: 11.25 MG, UNK 1 IN 3 MINUTES
     Route: 030
     Dates: start: 20100922
  4. OEMINE CHOLESTEROL [Concomitant]
     Indication: HYPERCHOLESTEROLAEMIA
     Route: 048
     Dates: start: 201109
  5. TENSIONIL [Concomitant]
     Indication: HYPERTENSION
  6. ENZALUTAMIDE [Suspect]
     Active Substance: ENZALUTAMIDE
     Indication: PROSTATE CANCER
     Route: 048
     Dates: start: 20111221
  7. TENSIONIL [Concomitant]
     Indication: CARDIOVASCULAR EVENT PROPHYLAXIS
     Route: 048
     Dates: start: 201307

REACTIONS (1)
  - Retinal vein occlusion [Not Recovered/Not Resolved]

NARRATIVE: CASE EVENT DATE: 20140323
